FAERS Safety Report 4917233-8 (Version None)
Quarter: 2006Q1

REPORT INFORMATION
  Report Type: 
  Country: None (occurrence: None)
  Receive Date: 20060221
  Receipt Date: 20050930
  Transmission Date: 20060701
  Serious: Yes (Other)
  Sender: FDA-Public Use
  Company Number: US-MERCK-0510USA01870

PATIENT
  Age: 57 Year
  Sex: Female
  Weight: 86 kg

DRUGS (18)
  1. VIOXX [Suspect]
     Indication: OSTEOARTHRITIS
     Route: 048
     Dates: start: 20000114
  2. VIOXX [Suspect]
     Route: 048
     Dates: end: 20030201
  3. VIOXX [Suspect]
     Indication: FIBROMYALGIA
     Route: 048
     Dates: start: 20000114
  4. VIOXX [Suspect]
     Route: 048
     Dates: end: 20030201
  5. BIAXIN [Concomitant]
     Route: 048
  6. COLYTE [Concomitant]
     Route: 048
  7. CYCLOBENZAPRINE HYDROCHLORIDE [Concomitant]
     Route: 048
  8. FLUOXETINE [Concomitant]
     Route: 048
  9. FUROSEMIDE [Concomitant]
     Route: 048
  10. GLUCOPHAGE [Concomitant]
     Route: 048
  11. INDERAL LA [Concomitant]
     Route: 048
  12. PHENERGAN TABLETS/SUPPOSITORIES [Concomitant]
     Route: 048
  13. PREMPRO [Concomitant]
     Route: 048
  14. PRILOSEC [Concomitant]
     Route: 048
  15. ACETAMINOPHEN AND PROPOXYPHENE NAPSYLATE [Concomitant]
     Route: 048
  16. HYDROCHLOROTHIAZIDE AND TRIAMTERENE [Concomitant]
     Route: 048
  17. TRIMOX [Concomitant]
     Route: 048
  18. ZESTRIL [Concomitant]
     Route: 048

REACTIONS (12)
  - BLOOD PRESSURE INCREASED [None]
  - CARDIOVASCULAR DISORDER [None]
  - CHEST PAIN [None]
  - DIABETES MELLITUS NON-INSULIN-DEPENDENT [None]
  - HYPERTENSION [None]
  - ISCHAEMIC STROKE [None]
  - MITRAL VALVE INCOMPETENCE [None]
  - MITRAL VALVE STENOSIS [None]
  - PALPITATIONS [None]
  - TRANSIENT ISCHAEMIC ATTACK [None]
  - TRICUSPID VALVE INCOMPETENCE [None]
  - VENTRICULAR HYPERTROPHY [None]
